FAERS Safety Report 7420337-1 (Version None)
Quarter: 2011Q2

REPORT INFORMATION
  Report Type: 
  Country: None (occurrence: None)
  Receive Date: 20110406
  Receipt Date: 20110325
  Transmission Date: 20111010
  Serious: Yes (Hospitalization)
  Sender: FDA-Public Use
  Company Number: 2011MA002951

PATIENT
  Age: 75 Year
  Sex: Female

DRUGS (1)
  1. HYDROMET SYRUP (HYDROCODONE BITARTRATE 5MG/5ML AND HOMATROPINE MBR 1.5 [Suspect]
     Indication: COUGH
     Dosage: 2 TSP; X1; PO
     Route: 048
     Dates: start: 20110317, end: 20110317

REACTIONS (5)
  - NAUSEA [None]
  - PALPITATIONS [None]
  - VOMITING [None]
  - DIZZINESS [None]
  - HYPERHIDROSIS [None]
